FAERS Safety Report 7015871-2 (Version None)
Quarter: 2010Q3

REPORT INFORMATION
  Report Type: 
  Country: None (occurrence: None)
  Receive Date: 20100927
  Receipt Date: 20090928
  Transmission Date: 20110219
  Serious: No
  Sender: FDA-Public Use
  Company Number: US-ASTRAZENECA-2009SE16201

PATIENT
  Age: 63 Year
  Sex: Female

DRUGS (5)
  1. ARIMIDEX [Suspect]
     Indication: BREAST CANCER
     Route: 048
     Dates: start: 20090901
  2. VITAMIN E [Concomitant]
  3. VITAMIN B-12 [Concomitant]
  4. COMPLEX VITAMINS [Concomitant]
  5. MELONIN [Concomitant]
     Indication: SLEEP DISORDER

REACTIONS (4)
  - DEPRESSION [None]
  - HAIR GROWTH ABNORMAL [None]
  - PROMOTION OF WOUND HEALING [None]
  - THERAPEUTIC RESPONSE UNEXPECTED [None]
